FAERS Safety Report 7327295-9 (Version None)
Quarter: 2011Q1

REPORT INFORMATION
  Report Type: 
  Country: None (occurrence: None)
  Receive Date: 20110302
  Receipt Date: 20110223
  Transmission Date: 20110831
  Serious: Yes (Hospitalization, Other)
  Sender: FDA-Public Use
  Company Number: US-US-EMD SERONO, INC.-7044181

PATIENT
  Sex: Female

DRUGS (1)
  1. REBIF [Suspect]
     Indication: MULTIPLE SCLEROSIS
     Route: 058
     Dates: start: 20041025

REACTIONS (4)
  - IRRITABLE BOWEL SYNDROME [None]
  - SICKLE CELL ANAEMIA WITH CRISIS [None]
  - RENAL CYST [None]
  - CHOLELITHIASIS [None]
